FAERS Safety Report 6150443-3 (Version None)
Quarter: 2009Q2

REPORT INFORMATION
  Report Type: 
  Country: None (occurrence: None)
  Receive Date: 20090409
  Receipt Date: 20090325
  Transmission Date: 20091009
  Serious: No
  Sender: FDA-Public Use
  Company Number: JP-JNJFOC-20090303367

PATIENT
  Sex: Female

DRUGS (8)
  1. CRAVIT [Suspect]
     Indication: ENTEROCOLITIS
     Route: 048
     Dates: start: 20090216, end: 20090220
  2. OLMETEC [Concomitant]
     Indication: HYPERTENSION
     Route: 048
  3. GASTER D [Concomitant]
     Indication: GASTRITIS
     Route: 048
  4. AMLODIPINE [Concomitant]
     Indication: HYPERTENSION
     Route: 048
  5. BLOPRESS [Concomitant]
     Indication: HYPERTENSION
     Route: 048
  6. CEREKINON [Concomitant]
     Indication: GASTRITIS
     Route: 048
  7. DORNER [Concomitant]
     Indication: ARTERIAL OCCLUSIVE DISEASE
     Route: 048
  8. LIPITOR [Concomitant]
     Indication: DYSLIPIDAEMIA
     Route: 048

REACTIONS (1)
  - URINARY RETENTION [None]
